FAERS Safety Report 6395321-X (Version None)
Quarter: 2009Q4

REPORT INFORMATION
  Report Type: 
  Country: None (occurrence: None)
  Receive Date: 20091009
  Receipt Date: 20091002
  Transmission Date: 20100525
  Serious: Yes (Hospitalization)
  Sender: FDA-Public Use
  Company Number: B0564902A

PATIENT
  Sex: Male
  Weight: 21.25 kg

DRUGS (25)
  1. ARRANON [Suspect]
     Route: 042
     Dates: start: 20080117, end: 20080324
  2. CYCLOPHOSPHAMIDE [Suspect]
     Indication: NEOPLASM MALIGNANT
     Dates: start: 20080220, end: 20080229
  3. CYTARABINE [Suspect]
     Indication: NEOPLASM MALIGNANT
     Dates: start: 20080221, end: 20080302
  4. METHOTREXATE [Suspect]
     Indication: NEOPLASM MALIGNANT
     Dates: start: 20080228, end: 20080228
  5. MERCAPTOPURINE [Suspect]
     Indication: NEOPLASM MALIGNANT
     Route: 048
     Dates: start: 20080220, end: 20080304
  6. MITOXANTRONE HYDROCHLORIDE [Concomitant]
     Indication: NEOPLASM MALIGNANT
     Route: 042
     Dates: start: 20071226, end: 20071226
  7. ETOPOSIDE [Concomitant]
     Indication: NEOPLASM MALIGNANT
     Route: 042
     Dates: start: 20071226, end: 20071230
  8. IFOSFAMIDE [Concomitant]
     Indication: NEOPLASM MALIGNANT
     Route: 042
     Dates: start: 20071226, end: 20071230
  9. BACTRAMIN [Concomitant]
     Indication: ANTIFUNGAL PROPHYLAXIS
     Route: 048
     Dates: start: 20080117, end: 20080325
  10. SALOBEL [Concomitant]
     Indication: PROPHYLAXIS
     Route: 048
     Dates: start: 20080117, end: 20080325
  11. SEPAMIT [Concomitant]
     Indication: HYPERTENSION
     Route: 048
     Dates: start: 20080117, end: 20080307
  12. ITRIZOLE [Concomitant]
     Indication: ORAL CANDIDIASIS
     Route: 048
     Dates: start: 20080214, end: 20080325
  13. SOLDEM 3A [Concomitant]
     Route: 042
     Dates: start: 20080117, end: 20080325
  14. MEYLON [Concomitant]
     Route: 042
     Dates: start: 20080117, end: 20080325
  15. UNKNOWN DRUG [Concomitant]
     Indication: PROPHYLAXIS
     Dates: start: 20080117, end: 20080325
  16. MEROPEN [Concomitant]
     Indication: INFECTION
     Route: 042
     Dates: start: 20080117, end: 20080122
  17. SEROTONE [Concomitant]
     Indication: VOMITING
     Route: 042
     Dates: start: 20080117, end: 20080325
  18. FOY [Concomitant]
     Indication: DISSEMINATED INTRAVASCULAR COAGULATION
     Route: 042
     Dates: start: 20080117, end: 20080131
  19. SOLU-CORTEF [Concomitant]
     Indication: HYPERSENSITIVITY
     Dates: start: 20080118, end: 20080325
  20. DORMICUM [Concomitant]
     Indication: SEDATION
     Dates: start: 20080213
  21. ANEXATE [Concomitant]
     Indication: SEDATION
     Route: 042
     Dates: start: 20080213
  22. KETALAR [Concomitant]
     Indication: SEDATION
     Dates: start: 20080213
  23. ZOFRAN [Concomitant]
     Indication: VOMITING
     Route: 042
     Dates: start: 20080222, end: 20080305
  24. NEO-MINOPHAGEN-C [Concomitant]
     Indication: ALLERGY PROPHYLAXIS
     Route: 042
     Dates: start: 20080221, end: 20080303
  25. THIOPENTAL SODIUM [Concomitant]
     Indication: SEDATION
     Dates: start: 20080228

REACTIONS (2)
  - WHITE BLOOD CELL COUNT DECREASED [None]
  - WHITE BLOOD CELL COUNT INCREASED [None]
